FAERS Safety Report 6147901-4 (Version None)
Quarter: 2009Q2

REPORT INFORMATION
  Report Type: 
  Country: None (occurrence: None)
  Receive Date: 20090402
  Receipt Date: 20081222
  Transmission Date: 20091009
  Serious: No
  Sender: FDA-Public Use
  Company Number: 1000004587

PATIENT
  Age: 54 Year
  Sex: Female
  Weight: 66.6788 kg

DRUGS (2)
  1. BYSTOLIC [Suspect]
     Indication: HYPERTENSION
     Dosage: 5 MG (5 MG, 1 IN 1 D), ORAL
     Route: 048
     Dates: start: 20080915, end: 20081009
  2. ZOLOFT [Concomitant]

REACTIONS (1)
  - BACK PAIN [None]
